FAERS Safety Report 20570909 (Version 1)
Quarter: 2022Q1

REPORT INFORMATION
  Report Type: Spontaneous
  Country: ES (occurrence: ES)
  Receive Date: 20220309
  Receipt Date: 20220309
  Transmission Date: 20220424
  Serious: Yes (Hospitalization, Other)
  Sender: FDA-Public Use
  Company Number: None

PATIENT
  Age: 73 Year
  Sex: Male

DRUGS (9)
  1. ENOXAPARIN SODIUM [Suspect]
     Active Substance: ENOXAPARIN SODIUM
     Indication: Prophylaxis
     Dosage: 80 MG, BID
     Route: 058
     Dates: start: 20220118, end: 20220204
  2. LORAZEPAM [Concomitant]
     Active Substance: LORAZEPAM
     Dosage: 1 MG, QD
     Route: 048
     Dates: start: 20210119
  3. ATORVASTATINA KERN PHARMA [Concomitant]
     Dosage: 20 MG, QD
     Route: 048
     Dates: start: 20170818
  4. TRAMADOL HYDROCHLORIDE [Concomitant]
     Active Substance: TRAMADOL HYDROCHLORIDE
     Dosage: 50 MG, TID
     Route: 048
     Dates: start: 20220118
  5. OMEPRAZOLE [Concomitant]
     Active Substance: OMEPRAZOLE
     Dosage: 20 MG, QD
     Route: 048
     Dates: start: 20151214
  6. METAMIZOL SODIUM [Concomitant]
     Active Substance: METAMIZOL SODIUM
     Dosage: 575 MG, BID
     Route: 048
     Dates: start: 20180413
  7. CALCIUM CARBONATE\CHOLECALCIFEROL [Concomitant]
     Active Substance: CALCIUM CARBONATE\CHOLECALCIFEROL
     Dosage: 1 DF, BID
     Route: 048
     Dates: start: 20220125
  8. TRAMADOL/PARACETAMOL TARBIS [Concomitant]
     Dosage: 1 G, TID
     Route: 048
     Dates: start: 20220119
  9. VALSARTAN/HIDROCLOROTIAZIDA TEVA [Concomitant]
     Dosage: 1 DF, QD
     Route: 048
     Dates: start: 20201223

REACTIONS (1)
  - Compartment syndrome [Recovered/Resolved]
